FAERS Safety Report 8555513-8 (Version None)
Quarter: 2012Q3

REPORT INFORMATION
  Report Type: 
  Country: None (occurrence: None)
  Receive Date: 20120731
  Receipt Date: 20110906
  Transmission Date: 20120928
  Serious: No
  Sender: FDA-Public Use
  Company Number: US-ASTRAZENECA-2011SE08124

PATIENT
  Age: 56 Year
  Sex: Female
  Weight: 64.4 kg

DRUGS (5)
  1. SEROQUEL [Suspect]
     Route: 048
     Dates: start: 20110101, end: 20110831
  2. XANAX [Concomitant]
     Route: 048
  3. SEROQUEL [Suspect]
     Indication: BIPOLAR DISORDER
     Route: 048
  4. XANAX [Concomitant]
     Dosage: AS NEEDED
     Route: 048
  5. XANAX [Concomitant]
     Dosage: 2 TIMES A DAY
     Route: 048

REACTIONS (9)
  - INCORRECT DOSE ADMINISTERED [None]
  - SLEEP DISORDER [None]
  - DRUG DOSE OMISSION [None]
  - DRUG WITHDRAWAL SYNDROME [None]
  - RASH PRURITIC [None]
  - SOMNOLENCE [None]
  - AGITATION [None]
  - INTENTIONAL DRUG MISUSE [None]
  - FEELING DRUNK [None]
